FAERS Safety Report 13155527 (Version 1)
Quarter: 2017Q1

REPORT INFORMATION
  Report Type: Spontaneous
  Country: US (occurrence: US)
  Receive Date: 20170126
  Receipt Date: 20170126
  Transmission Date: 20170428
  Serious: Yes (Death)
  Sender: FDA-Public Use
  Company Number: US-PFIZER INC-2017026333

PATIENT
  Age: 37 Year
  Sex: Female

DRUGS (11)
  1. GABAPENTIN. [Suspect]
     Active Substance: GABAPENTIN
  2. LITHIUM. [Suspect]
     Active Substance: LITHIUM
  3. DULOXETINE. [Suspect]
     Active Substance: DULOXETINE
  4. DIAZEPAM. [Suspect]
     Active Substance: DIAZEPAM
  5. OXCARBAZEPINE. [Suspect]
     Active Substance: OXCARBAZEPINE
  6. BUPROPION. [Suspect]
     Active Substance: BUPROPION
  7. QUETIAPINE. [Suspect]
     Active Substance: QUETIAPINE
  8. BENZTROPINE [Suspect]
     Active Substance: BENZTROPINE
  9. DIPHENHYDRAMINE HCL [Suspect]
     Active Substance: DIPHENHYDRAMINE HYDROCHLORIDE
  10. ZOLPIDEM [Suspect]
     Active Substance: ZOLPIDEM\ZOLPIDEM TARTRATE
  11. LURASIDONE [Suspect]
     Active Substance: LURASIDONE

REACTIONS (1)
  - Completed suicide [Fatal]

NARRATIVE: CASE EVENT DATE: 2015
